FAERS Safety Report 5388028-9 (Version None)
Quarter: 2007Q3

REPORT INFORMATION
  Report Type: 
  Country: None (occurrence: None)
  Receive Date: 20070716
  Receipt Date: 20070706
  Transmission Date: 20080115
  Serious: Yes (Hospitalization)
  Sender: FDA-Public Use
  Company Number: FR-MERCK-0707FRA00022

PATIENT
  Age: 64 Year
  Sex: Male

DRUGS (3)
  1. PRIMAXIN [Suspect]
     Route: 065
  2. CYCLOSPORINE [Concomitant]
     Indication: RENAL TRANSPLANT
     Route: 048
     Dates: start: 20060115
  3. PREDNISONE [Concomitant]
     Route: 065
     Dates: start: 20060109

REACTIONS (4)
  - ENCEPHALITIS [None]
  - OVERDOSE [None]
  - RENAL FAILURE ACUTE [None]
  - URETERIC STENOSIS [None]
